FAERS Safety Report 7780439-7 (Version None)
Quarter: 2011Q3

REPORT INFORMATION
  Report Type: 
  Country: None (occurrence: None)
  Receive Date: 20110927
  Receipt Date: 20110922
  Transmission Date: 20111222
  Serious: No
  Sender: FDA-Public Use
  Company Number: US-SANOFI-AVENTIS-2011SA054573

PATIENT
  Age: 52 Year
  Sex: Female

DRUGS (7)
  1. SIMVASTATIN [Concomitant]
     Dates: start: 20100401
  2. COUMADIN [Concomitant]
     Indication: ATRIAL FIBRILLATION
     Dates: start: 20060101, end: 20110720
  3. MULTAQ [Suspect]
     Indication: ATRIAL FIBRILLATION
     Route: 048
     Dates: start: 20101203, end: 20110110
  4. MYCOPHENOLATE MOFETIL (CELLCEPT) [Concomitant]
     Indication: PROPHYLAXIS AGAINST TRANSPLANT REJECTION
     Dates: start: 20070101
  5. PROGRAF [Suspect]
     Indication: PROPHYLAXIS AGAINST TRANSPLANT REJECTION
     Route: 065
     Dates: start: 20070317
  6. METOPROLOL TARTRATE [Concomitant]
     Indication: HEART RATE
     Dates: start: 20060101
  7. METOPROLOL TARTRATE [Concomitant]
     Indication: HYPERTENSION
     Dates: start: 20060101

REACTIONS (2)
  - GLOMERULAR FILTRATION RATE DECREASED [None]
  - BLOOD CREATININE INCREASED [None]
